FAERS Safety Report 13596963 (Version 1)
Quarter: 2017Q2

REPORT INFORMATION
  Report Type: Report from Study
  Country: US (occurrence: US)
  Receive Date: 20170531
  Receipt Date: 20170531
  Transmission Date: 20170830
  Serious: Yes (Hospitalization)
  Sender: FDA-Public Use
  Company Number: US-TEVA-740992USA

PATIENT
  Age: 17 Year
  Sex: Female

DRUGS (7)
  1. PROPANOLOL [Concomitant]
     Active Substance: PROPRANOLOL HYDROCHLORIDE
  2. CLOZAPINE. [Suspect]
     Active Substance: CLOZAPINE
     Route: 065
  3. RISPERDAL [Concomitant]
     Active Substance: RISPERIDONE
  4. DEPAKOTE [Concomitant]
     Active Substance: DIVALPROEX SODIUM
  5. ZYPREXA [Concomitant]
     Active Substance: OLANZAPINE
  6. ABILIFY [Concomitant]
     Active Substance: ARIPIPRAZOLE
  7. LITHIUM. [Concomitant]
     Active Substance: LITHIUM

REACTIONS (2)
  - Overdose [Recovered/Resolved]
  - Psychiatric decompensation [Recovered/Resolved]

NARRATIVE: CASE EVENT DATE: 201703
